FAERS Safety Report 8807520 (Version 2)
Quarter: 2012Q4

REPORT INFORMATION
  Report Type: 
  Country: KR (occurrence: KR)
  Receive Date: 20120925
  Receipt Date: 20121009
  Transmission Date: 20130627
  Serious: Yes (Other)
  Sender: FDA-Public Use
  Company Number: KR-PFIZER INC-2012229004

PATIENT
  Sex: Male

DRUGS (3)
  1. LYRICA [Suspect]
     Indication: HYPOAESTHESIA
     Dosage: 75 mg, 2x/day
     Route: 048
     Dates: start: 2011
  2. LYRICA [Suspect]
     Indication: HYPOAESTHESIA
     Dosage: 150 mg, 2x/day
     Route: 048
     Dates: start: 2012, end: 2012
  3. LYRICA [Suspect]
     Dosage: 150 mg, 1x/day (in the evening)
     Route: 048
     Dates: start: 2012

REACTIONS (4)
  - Cataract [Unknown]
  - Visual acuity reduced [Not Recovered/Not Resolved]
  - Iris disorder [Unknown]
  - Dizziness [Recovered/Resolved]
